FAERS Safety Report 12677270 (Version 1)
Quarter: 2016Q3

REPORT INFORMATION
  Report Type: Report from Study
  Country: FR (occurrence: FR)
  Receive Date: 20160823
  Receipt Date: 20160823
  Transmission Date: 20161109
  Serious: Yes (Other)
  Sender: FDA-Public Use
  Company Number: FR-JNJFOC-20160813257

PATIENT

DRUGS (5)
  1. METHOTREXATE. [Suspect]
     Active Substance: METHOTREXATE
     Indication: OSTEOSARCOMA
     Route: 065
  2. CISPLATIN. [Suspect]
     Active Substance: CISPLATIN
     Indication: OSTEOSARCOMA
  3. IFOSFAMIDE. [Suspect]
     Active Substance: IFOSFAMIDE
     Indication: OSTEOSARCOMA
     Route: 065
  4. ZOLEDRONATE [Suspect]
     Active Substance: ZOLEDRONIC ACID
     Indication: OSTEOSARCOMA
     Route: 065
  5. DOXORUBICIN HYDROCHLORIDE. [Suspect]
     Active Substance: DOXORUBICIN HYDROCHLORIDE
     Indication: OSTEOSARCOMA
     Dosage: 75 MG/M2 IN PATIENTS WITH POOR HISTOLOGICAL RESPONSE
     Route: 065

REACTIONS (36)
  - Wound complication [Unknown]
  - Angiopathy [Unknown]
  - Pyrexia [Unknown]
  - Cardiotoxicity [Unknown]
  - Hypersensitivity [Unknown]
  - Aspartate aminotransferase increased [Unknown]
  - Renal disorder [Unknown]
  - Fracture [Unknown]
  - Febrile neutropenia [Unknown]
  - Headache [Unknown]
  - Thrombocytopenia [Unknown]
  - Blood bilirubin increased [Unknown]
  - Blood creatinine increased [Unknown]
  - Ototoxicity [Unknown]
  - Endocrine toxicity [Unknown]
  - Musculoskeletal disorder [Unknown]
  - Anaemia [Unknown]
  - Ocular toxicity [Unknown]
  - Sexual dysfunction [Unknown]
  - Hypocalcaemia [Unknown]
  - Haemorrhage [Unknown]
  - Genitourinary symptom [Unknown]
  - Infection [Unknown]
  - Weight decreased [Unknown]
  - Neuropathy peripheral [Unknown]
  - Hypophosphataemia [Unknown]
  - Gastrointestinal disorder [Unknown]
  - Mucosal inflammation [Unknown]
  - Neutropenia [Unknown]
  - Alanine aminotransferase increased [Unknown]
  - Mood altered [Unknown]
  - Skin toxicity [Unknown]
  - Nonspecific reaction [Unknown]
  - Cystitis [Unknown]
  - Pulmonary toxicity [Unknown]
  - Neurotoxicity [Unknown]
